FAERS Safety Report 4384843-9 (Version None)
Quarter: 2004Q2

REPORT INFORMATION
  Report Type: 
  Country: None (occurrence: None)
  Receive Date: 20040623
  Receipt Date: 20040621
  Transmission Date: 20050107
  Serious: Yes (Other)
  Sender: FDA-Public Use
  Company Number: 2004006295

PATIENT
  Age: 34 Year
  Sex: Male
  Weight: 94.3482 kg

DRUGS (2)
  1. NATURAL CITRUS LISTERINE (EUCALYPTOL, MENTHOL, METHYL SALICYLATE, THYM [Suspect]
     Indication: DENTAL CARE
     Dosage: ONE CAPFUL ONE EVERY OTHER
     Dates: start: 20031225, end: 20040123
  2. ANTIHYPERTENSIVES (ANTIHYPERTENSIVES) [Concomitant]

REACTIONS (11)
  - AGEUSIA [None]
  - CAUSTIC INJURY [None]
  - CHAPPED LIPS [None]
  - GLOSSITIS [None]
  - GLOSSODYNIA [None]
  - INSOMNIA [None]
  - LIP DRY [None]
  - ORAL FUNGAL INFECTION [None]
  - ORAL PAIN [None]
  - STOMATITIS [None]
  - SWOLLEN TONGUE [None]
